FAERS Safety Report 12836967 (Version 1)
Quarter: 2016Q4

REPORT INFORMATION
  Report Type: Report from Study
  Country: CH (occurrence: CH)
  Receive Date: 20161011
  Receipt Date: 20161011
  Transmission Date: 20170207
  Serious: Yes (Other)
  Sender: FDA-Public Use
  Company Number: CH-BAYER-2015-485794

PATIENT
  Age: 29 Year
  Sex: Female

DRUGS (1)
  1. BETAFERON [Suspect]
     Active Substance: INTERFERON BETA-1B
     Indication: MULTIPLE SCLEROSIS
     Dosage: 250 ?G, QOD
     Route: 058
     Dates: start: 20151116

REACTIONS (16)
  - Stress [Not Recovered/Not Resolved]
  - Necrosis [Recovered/Resolved]
  - Night sweats [Not Recovered/Not Resolved]
  - Influenza like illness [Not Recovered/Not Resolved]
  - Injection site pain [Not Recovered/Not Resolved]
  - Pain in extremity [Not Recovered/Not Resolved]
  - Headache [Unknown]
  - Back pain [Unknown]
  - Nausea [Recovered/Resolved]
  - Fatigue [Not Recovered/Not Resolved]
  - Paraesthesia [Not Recovered/Not Resolved]
  - Injection site erythema [Not Recovered/Not Resolved]
  - Injection site discolouration [Not Recovered/Not Resolved]
  - Musculoskeletal stiffness [Unknown]
  - Injection site atrophy [Not Recovered/Not Resolved]
  - Injection site induration [Not Recovered/Not Resolved]

NARRATIVE: CASE EVENT DATE: 20151130
